FAERS Safety Report 4929313-1 (Version None)
Quarter: 2006Q1

REPORT INFORMATION
  Report Type: 
  Country: None (occurrence: None)
  Receive Date: 20060301
  Receipt Date: 20051130
  Transmission Date: 20060701
  Serious: Yes (Other)
  Sender: FDA-Public Use
  Company Number: US-ROCHE-427207

PATIENT
  Age: 24 Year
  Sex: Male
  Weight: 86.6 kg

DRUGS (3)
  1. ACCUTANE [Suspect]
     Route: 048
     Dates: start: 19980423
  2. ACCUTANE [Suspect]
     Route: 048
  3. ACCUTANE [Suspect]
     Dosage: DOSE REDUCED.
     Route: 048
     Dates: end: 19980920

REACTIONS (17)
  - ANAEMIA [None]
  - ARTHRALGIA [None]
  - ARTHRITIS [None]
  - BOWEL MOVEMENT IRREGULARITY [None]
  - COLITIS ULCERATIVE [None]
  - CROHN'S DISEASE [None]
  - DEPRESSION [None]
  - ERYTHEMA [None]
  - GASTROINTESTINAL INJURY [None]
  - HAEMORRHAGE [None]
  - INFLAMMATORY BOWEL DISEASE [None]
  - JOINT INJURY [None]
  - LEUKOCYTOSIS [None]
  - MUSCLE INJURY [None]
  - MYALGIA [None]
  - NASAL DRYNESS [None]
  - PAINFUL DEFAECATION [None]
